FAERS Safety Report 9028268 (Version 1)
Quarter: 2013Q1

REPORT INFORMATION
  Report Type: Spontaneous
  Country: US (occurrence: US)
  Receive Date: 20130124
  Receipt Date: 20130124
  Transmission Date: 20140127
  Serious: No
  Sender: FDA-Public Use
  Company Number: US-BAUSCH-BL-2012-000733

PATIENT
  Age: 72 Year
  Sex: Female

DRUGS (4)
  1. ALAWAY [Suspect]
     Indication: EYE ALLERGY
     Dosage: 1 DROP IN EYE(S); ONCE DAILY
     Route: 047
     Dates: start: 20120823, end: 20120824
  2. ALAWAY [Suspect]
     Indication: EYE PRURITUS
  3. ALAWAY [Suspect]
     Indication: EYE IRRITATION
  4. LORATADINE [Concomitant]
     Indication: HYPERSENSITIVITY

REACTIONS (3)
  - Eye irritation [Recovered/Resolved]
  - Eye pain [Not Recovered/Not Resolved]
  - Ocular hyperaemia [Recovered/Resolved]
